FAERS Safety Report 9565561 (Version 2)
Quarter: 2014Q1

REPORT INFORMATION
  Report Type: Spontaneous
  Country: GB (occurrence: GB)
  Receive Date: 20130930
  Receipt Date: 20140129
  Transmission Date: 20141002
  Serious: Yes (Life-Threatening, Hospitalization, Other)
  Sender: FDA-Public Use
  Company Number: GB-TEVA-434089ISR

PATIENT
  Age: 64 Year
  Sex: Male
  Weight: 70 kg

DRUGS (7)
  1. OLANZAPINE [Suspect]
     Indication: SCHIZOPHRENIA
     Dosage: 7.5 MILLIGRAM DAILY;
     Route: 048
     Dates: end: 20130830
  2. PAROXETINE [Suspect]
     Dosage: 50 MILLIGRAM DAILY;
     Route: 048
  3. AMISULPRIDE [Suspect]
     Dosage: 1200 MILLIGRAM DAILY; 400MG IN THE MORNING AND 800MG AT NIGHT
     Route: 048
     Dates: end: 20130829
  4. METFORMIN [Concomitant]
  5. SIMVASTATIN [Concomitant]
  6. PIOGLITAZONE [Concomitant]
  7. ZOPICLONE [Concomitant]

REACTIONS (3)
  - Neuroleptic malignant syndrome [Not Recovered/Not Resolved]
  - Fall [Unknown]
  - Blood creatine phosphokinase increased [Unknown]
